FAERS Safety Report 6367664-7 (Version None)
Quarter: 2009Q3

REPORT INFORMATION
  Report Type: 
  Country: None (occurrence: None)
  Receive Date: 20090916
  Receipt Date: 20090904
  Transmission Date: 20100115
  Serious: Yes (Death, Hospitalization)
  Sender: FDA-Public Use
  Company Number: 2009PL000271

PATIENT
  Age: 69 Year
  Sex: Female

DRUGS (1)
  1. IMURAN [Suspect]
     Indication: AUTOIMMUNE HEPATITIS
     Dosage: 50 MG; QD;

REACTIONS (29)
  - ACUTE RESPIRATORY FAILURE [None]
  - APHASIA [None]
  - B-LYMPHOCYTE COUNT INCREASED [None]
  - BRAIN HERNIATION [None]
  - BRAIN MASS [None]
  - BRAIN OEDEMA [None]
  - CONFUSIONAL STATE [None]
  - COUGH [None]
  - DYSARTHRIA [None]
  - DYSPNOEA [None]
  - EPSTEIN-BARR VIRUS TEST POSITIVE [None]
  - ESCHERICHIA INFECTION [None]
  - FATIGUE [None]
  - HEPATIC CIRRHOSIS [None]
  - HYPOTENSION [None]
  - INAPPROPRIATE ANTIDIURETIC HORMONE SECRETION [None]
  - LETHARGY [None]
  - LUNG INFILTRATION [None]
  - MORAXELLA INFECTION [None]
  - MULTI-ORGAN FAILURE [None]
  - MUSCULAR WEAKNESS [None]
  - NIGHT SWEATS [None]
  - NO THERAPEUTIC RESPONSE [None]
  - PANCYTOPENIA [None]
  - PULMONARY OEDEMA [None]
  - PYREXIA [None]
  - SEPSIS [None]
  - SOMNOLENCE [None]
  - WEIGHT DECREASED [None]
